FAERS Safety Report 10881259 (Version 4)
Quarter: 2016Q4

REPORT INFORMATION
  Report Type: Spontaneous
  Country: US (occurrence: US)
  Receive Date: 20150303
  Receipt Date: 20161013
  Transmission Date: 20170206
  Serious: No
  Sender: FDA-Public Use
  Company Number: US-PFIZER INC-2015074620

PATIENT
  Age: 79 Year
  Sex: Female
  Weight: 90.7 kg

DRUGS (8)
  1. INLYTA [Suspect]
     Active Substance: AXITINIB
     Dosage: 7 DF, DAILY (3 PILLS IN MORNING AND 4 PILLS IN THE NIGHT)
     Route: 048
     Dates: end: 201512
  2. INLYTA [Suspect]
     Active Substance: AXITINIB
     Dosage: 9 DF, DAILY (3 PILLS IN MORNING AND 3 PILLS AT AFTERNOON AND 3 PILLS LATE IN THE NIGHT)
  3. GABAPENTIN. [Suspect]
     Active Substance: GABAPENTIN
     Indication: NEURALGIA
     Dosage: UNK
  4. PANTOR [Concomitant]
     Indication: FLATULENCE
  5. VERAPAMIL [Concomitant]
     Active Substance: VERAPAMIL HYDROCHLORIDE
     Indication: BLOOD PRESSURE ABNORMAL
     Dosage: 240 MG, UNK
  6. LEVOTHYROXINE. [Concomitant]
     Active Substance: LEVOTHYROXINE
     Indication: THYROID DISORDER
     Dosage: 75 MG, UNK
  7. INLYTA [Suspect]
     Active Substance: AXITINIB
     Indication: NEOPLASM MALIGNANT
     Dosage: 5 DF, DAILY (3 PILLS IN MORNING AND 2 PILLS IN THE NIGHT)
     Route: 048
     Dates: start: 201411
  8. INLYTA [Suspect]
     Active Substance: AXITINIB
     Dosage: 5 DF, DAILY (2 PILLS IN MORNING AND 3 PILLS IN THE NIGHT)
     Route: 048

REACTIONS (10)
  - Nausea [Recovered/Resolved]
  - Asthenia [Recovered/Resolved]
  - Blood pressure increased [Unknown]
  - Thermal burn [Unknown]
  - Alopecia [Not Recovered/Not Resolved]
  - Nervousness [Unknown]
  - Feeling abnormal [Unknown]
  - Hyperhidrosis [Unknown]
  - Fatigue [Unknown]
  - Drug hypersensitivity [Unknown]

NARRATIVE: CASE EVENT DATE: 201512
